FAERS Safety Report 14356807 (Version 4)
Quarter: 2019Q1

REPORT INFORMATION
  Report Type: Spontaneous
  Country: DE (occurrence: DE)
  Receive Date: 20180105
  Receipt Date: 20190226
  Transmission Date: 20190417
  Serious: Yes (Hospitalization, Other)
  Sender: FDA-Public Use
  Company Number: PHHY2018DE000627

PATIENT

DRUGS (30)
  1. XELODA [Suspect]
     Active Substance: CAPECITABINE
     Indication: COLORECTAL CANCER METASTATIC
     Dosage: 3000 MG, Q3W
     Route: 048
     Dates: start: 20150924, end: 20151118
  2. ENOXAPARIN [Concomitant]
     Active Substance: ENOXAPARIN
     Indication: THROMBOSIS
     Dosage: 0.4 ML, QD
     Route: 058
     Dates: start: 20151122, end: 20151202
  3. FORTECORTIN [Concomitant]
     Active Substance: DEXAMETHASONE
     Indication: NAUSEA
     Dosage: 10 MG, Q3W
     Route: 042
     Dates: start: 20150924, end: 20160321
  4. FOSINORM [Concomitant]
     Indication: HYPERTENSION
  5. DIMENHYDRINAT [Concomitant]
     Active Substance: DIMENHYDRINATE
     Indication: VOMITING
     Dosage: 1 OT, UNK (1AMPOLE)
     Route: 065
  6. SIMVASTATIN. [Concomitant]
     Active Substance: SIMVASTATIN
     Indication: HYPERCHOLESTEROLAEMIA
     Dosage: 10 MG, QD
     Route: 048
     Dates: start: 2015
  7. OXALIPLATIN. [Suspect]
     Active Substance: OXALIPLATIN
     Indication: COLORECTAL CANCER METASTATIC
     Dosage: 167 MG, Q3W
     Route: 042
     Dates: start: 20160413, end: 20160504
  8. IRINOTECAN [Concomitant]
     Active Substance: IRINOTECAN
     Indication: COLORECTAL CANCER
     Dosage: 323.2 MG, Q3W
     Route: 042
     Dates: start: 20150924, end: 20151105
  9. FORTECORTIN [Concomitant]
     Active Substance: DEXAMETHASONE
     Indication: VOMITING
     Dosage: UNK
     Route: 065
  10. GLIMEPIRID [Concomitant]
     Active Substance: GLIMEPIRIDE
     Indication: DIABETES MELLITUS
     Dosage: 2 MG, QD
     Route: 048
     Dates: start: 2011, end: 20151127
  11. ASPIRIN. [Concomitant]
     Active Substance: ASPIRIN
     Indication: PRODUCT USED FOR UNKNOWN INDICATION
     Dosage: 100 MG, QD
     Route: 048
     Dates: start: 2001
  12. KANAKION [Concomitant]
     Indication: PRODUCT USED FOR UNKNOWN INDICATION
     Dosage: 10 MG, UNK
     Route: 042
  13. OXALIPLATIN. [Suspect]
     Active Substance: OXALIPLATIN
     Dosage: 120 MG, Q3W
     Route: 042
     Dates: start: 20160609, end: 20160609
  14. XELODA [Suspect]
     Active Substance: CAPECITABINE
     Dosage: 2000 MG, Q3W
     Route: 048
     Dates: start: 20160609
  15. AMLODIPIN [Concomitant]
     Active Substance: AMLODIPINE BESYLATE
     Indication: HYPERTENSION
     Dosage: 7.5 MG, QD
     Route: 048
     Dates: start: 201407
  16. OXALIPLATIN. [Suspect]
     Active Substance: OXALIPLATIN
     Dosage: 119.6 MG, UNK
     Route: 042
     Dates: start: 20161004, end: 20161004
  17. XELODA [Suspect]
     Active Substance: CAPECITABINE
     Dosage: 2500 MG, Q3W (D1 TO D14, ONE WEEK REST, MOST RECENT DOSES RECEIVED ON 03/APR/2016, 04/MAY/2016  )
     Route: 048
     Dates: start: 20160118
  18. AVASTIN [Suspect]
     Active Substance: BEVACIZUMAB
     Dosage: 615 MG, Q3W
     Route: 042
     Dates: start: 20151105, end: 20151105
  19. IRINOTECAN [Concomitant]
     Active Substance: IRINOTECAN
     Dosage: 220.8 MG, Q3W (MOST RECENT DOSE RECEIVED ON 21 MAR 2016)
     Route: 042
     Dates: start: 20160229
  20. SIMVASTATIN. [Concomitant]
     Active Substance: SIMVASTATIN
     Dosage: 10 MG, QD
     Route: 048
     Dates: start: 20151119
  21. IRINOTECAN [Concomitant]
     Active Substance: IRINOTECAN
     Dosage: 220 MG, Q3W
     Route: 042
     Dates: start: 20160208, end: 20160208
  22. DEXAMETHASONE. [Concomitant]
     Active Substance: DEXAMETHASONE
     Indication: NAUSEA
     Dosage: 8 MG, UNK (DAY 1 BEFORE CHEMOTHERAPY)
     Route: 042
  23. AVASTIN [Suspect]
     Active Substance: BEVACIZUMAB
     Indication: COLORECTAL CANCER METASTATIC
     Dosage: 615 MG, Q3W
     Route: 042
     Dates: start: 20150924, end: 20150924
  24. KEVATRIL [Concomitant]
     Active Substance: GRANISETRON HYDROCHLORIDE
     Indication: NAUSEA
     Dosage: 1 ?G/L, Q3W
     Route: 042
     Dates: start: 20150924, end: 20160321
  25. ATROPIN [Concomitant]
     Active Substance: ATROPINE
     Indication: CHOLINERGIC SYNDROME
     Dosage: 0.25 MG, Q3W
     Route: 058
     Dates: start: 20150924, end: 20160321
  26. GRANISETRON [Concomitant]
     Active Substance: GRANISETRON
     Indication: NAUSEA
     Dosage: 1 MG, UNK (DAY 1 BEFORE CHEMOTHERAPY)
     Route: 042
  27. XELODA [Suspect]
     Active Substance: CAPECITABINE
     Dosage: 2000 MG, Q3W
     Route: 048
     Dates: start: 20161004, end: 20161017
  28. AVASTIN [Suspect]
     Active Substance: BEVACIZUMAB
     Dosage: 495 MG, Q3W
     Route: 042
     Dates: start: 20160321, end: 20160413
  29. FOSINORM [Concomitant]
     Indication: HYPERTENSION
     Dosage: 0.5 ?G/L, QD
     Route: 048
     Dates: start: 2001
  30. ATROPIN [Concomitant]
     Active Substance: ATROPINE
     Indication: DIARRHOEA
     Dosage: UNK
     Route: 065

REACTIONS (11)
  - Diarrhoea [Recovered/Resolved]
  - Decreased appetite [Recovered/Resolved]
  - Vomiting [Recovered/Resolved]
  - Diarrhoea [Recovered/Resolved]
  - Hypokalaemia [Recovered/Resolved]
  - Diarrhoea [Recovering/Resolving]
  - Prothrombin time prolonged [Recovered/Resolved]
  - Proteinuria [Not Recovered/Not Resolved]
  - Diarrhoea [Recovered/Resolved]
  - Weight decreased [Not Recovered/Not Resolved]
  - Dehydration [Recovered/Resolved]

NARRATIVE: CASE EVENT DATE: 20150925
